FAERS Safety Report 10163307 (Version 1)
Quarter: 2014Q2

REPORT INFORMATION
  Report Type: Spontaneous
  Country: US (occurrence: US)
  Receive Date: 20140509
  Receipt Date: 20140509
  Transmission Date: 20141212
  Serious: No
  Sender: FDA-Public Use
  Company Number: US-009507513-1405USA002191

PATIENT
  Age: 3 Year
  Sex: Female

DRUGS (5)
  1. CLARITIN ORAL SOLUTION [Suspect]
     Indication: RHINORRHOEA
     Dosage: UNK, UNKNOWN
     Route: 048
  2. CLARITIN ORAL SOLUTION [Suspect]
     Indication: ALLERGY TO ANIMAL
  3. CLARITIN ORAL SOLUTION [Suspect]
     Indication: EYE SWELLING
  4. CLARITIN ORAL SOLUTION [Suspect]
     Indication: EYE PRURITUS
  5. CLARITIN ORAL SOLUTION [Suspect]
     Indication: URTICARIA

REACTIONS (1)
  - Drug ineffective for unapproved indication [Unknown]
